FAERS Safety Report 24004185 (Version 1)
Quarter: 2024Q2

REPORT INFORMATION
  Report Type: Spontaneous
  Country: DE (occurrence: DE)
  Receive Date: 20240624
  Receipt Date: 20240624
  Transmission Date: 20240716
  Serious: Yes (Other)
  Sender: FDA-Public Use
  Company Number: DE-MLMSERVICE-20240501-PI042023-00249-1

PATIENT
  Age: 65 Year
  Sex: Male

DRUGS (4)
  1. DOCETAXEL [Suspect]
     Active Substance: DOCETAXEL\DOCETAXEL ANHYDROUS
     Indication: Adenocarcinoma gastric
     Dosage: 4 CYCLES
     Route: 065
     Dates: start: 2022
  2. OXALIPLATIN [Suspect]
     Active Substance: OXALIPLATIN
     Indication: Gastric cancer stage III
     Dosage: 4 CYCLES
     Route: 065
     Dates: start: 2022
  3. LEUCOVORIN [Suspect]
     Active Substance: LEUCOVORIN\LEUCOVORIN CALCIUM
     Indication: Gastric cancer stage III
     Dosage: 4 CYCLES
     Route: 065
     Dates: start: 2022
  4. FLUOROURACIL [Suspect]
     Active Substance: FLUOROURACIL
     Indication: Gastric cancer stage III
     Dosage: 4 CYCLES
     Route: 065
     Dates: start: 2022

REACTIONS (3)
  - Polyneuropathy [Unknown]
  - Decreased appetite [Unknown]
  - Nausea [Unknown]

NARRATIVE: CASE EVENT DATE: 20220101
